FAERS Safety Report 7629675 (Version 1)
Quarter: 2020Q3

REPORT INFORMATION
  Report Type: Report from Study
  Country: US (occurrence: US)
  Receive Date: 20101014
  Receipt Date: 20101014
  Transmission Date: 20201104
  Serious: Yes (Other)
  Sender: FDA-Public Use
  Company Number: US-ROCHE-732084

PATIENT
  Age: 67 Year
  Weight: 63.5 kg

DRUGS (1)
  1. IBANDRONIC ACID. [Suspect]
     Active Substance: IBANDRONIC ACID
     Indication: OSTEOPOROSIS
     Route: 048
     Dates: start: 20100525, end: 20100825

REACTIONS (2)
  - Tooth extraction [Unknown]
  - Breast cancer [Unknown]

NARRATIVE: CASE EVENT DATE: 20100816
